FAERS Safety Report 24625876 (Version 1)
Quarter: 2024Q4

REPORT INFORMATION
  Report Type: Spontaneous
  Country: JP (occurrence: JP)
  Receive Date: 20241115
  Receipt Date: 20241115
  Transmission Date: 20250115
  Serious: Yes (Other)
  Sender: MERCK
  Company Number: JP-ONO-2024JP022858

PATIENT
  Age: 63 Year
  Sex: Female
  Weight: 76.9 kg

DRUGS (9)
  1. APREPITANT [Suspect]
     Active Substance: APREPITANT
     Indication: Prophylaxis of nausea and vomiting
     Dosage: UNK
     Route: 048
  2. LAMOTRIGINE [Suspect]
     Active Substance: LAMOTRIGINE
     Indication: Epilepsy
     Dosage: UNK
     Route: 065
  3. LAMOTRIGINE [Suspect]
     Active Substance: LAMOTRIGINE
     Dosage: 3000 MG, EVERYDAY
     Route: 065
  4. LEVETIRACETAM [Suspect]
     Active Substance: LEVETIRACETAM
     Indication: Epilepsy
     Dosage: UNK
     Route: 065
  5. LEVETIRACETAM [Suspect]
     Active Substance: LEVETIRACETAM
     Dosage: 150 MG, EVERYDAY
     Route: 065
  6. PALONOSETRON [Suspect]
     Active Substance: PALONOSETRON
     Dosage: UNK
     Route: 065
  7. OLANZAPINE [Suspect]
     Active Substance: OLANZAPINE
     Indication: Antiemetic supportive care
     Dosage: UNK
     Route: 065
  8. ETOPOSIDE [Concomitant]
     Active Substance: ETOPOSIDE
     Indication: Small cell lung cancer limited stage
     Dosage: UNK
     Route: 065
  9. CISPLATIN [Concomitant]
     Active Substance: CISPLATIN
     Indication: Small cell lung cancer limited stage
     Dosage: UNK
     Route: 065

REACTIONS (2)
  - Seizure [Unknown]
  - Therapeutic response decreased [Unknown]
